FAERS Safety Report 6920948-3 (Version None)
Quarter: 2010Q3

REPORT INFORMATION
  Report Type: 
  Country: None (occurrence: None)
  Receive Date: 20100812
  Receipt Date: 20100802
  Transmission Date: 20110219
  Serious: Yes (Hospitalization)
  Sender: FDA-Public Use
  Company Number: IT-PFIZER INC-2010096665

PATIENT
  Age: 48 Year
  Sex: Female

DRUGS (1)
  1. LINCOCIN [Suspect]
     Dosage: UNK
     Dates: start: 20100625, end: 20100625

REACTIONS (2)
  - ANGIOEDEMA [None]
  - URTICARIA [None]
